FAERS Safety Report 5363592-4 (Version None)
Quarter: 2007Q2

REPORT INFORMATION
  Report Type: 
  Country: None (occurrence: None)
  Receive Date: 20070620
  Receipt Date: 20070614
  Transmission Date: 20071010
  Serious: Yes (Other)
  Sender: FDA-Public Use
  Company Number: A0658096A

PATIENT
  Sex: Female

DRUGS (5)
  1. FLOVENT [Suspect]
     Indication: ASTHMA
     Route: 065
  2. ADVAIR DISKUS 100/50 [Suspect]
     Indication: ASTHMA
     Dosage: 250MCG TWICE PER DAY
     Route: 065
     Dates: start: 20070604, end: 20070612
  3. SINGULAIR [Suspect]
     Indication: ASTHMA
     Route: 065
     Dates: end: 20070604
  4. VENTOLIN [Concomitant]
     Indication: ASTHMA
     Route: 065
  5. PREDNISONE TAB [Concomitant]

REACTIONS (6)
  - ASTHMA [None]
  - DRUG INEFFECTIVE [None]
  - DYSPNOEA [None]
  - INSOMNIA [None]
  - PALPITATIONS [None]
  - WHEEZING [None]
